FAERS Safety Report 9904412 (Version 1)
Quarter: 2014Q1

REPORT INFORMATION
  Report Type: Spontaneous
  Country: CA (occurrence: CA)
  Receive Date: 20140218
  Receipt Date: 20140218
  Transmission Date: 20141002
  Serious: Yes (Other)
  Sender: FDA-Public Use
  Company Number: CA-SA-2014SA019576

PATIENT
  Age: 44 Year
  Sex: Female
  Weight: 80 kg

DRUGS (2)
  1. FABRAZYME [Suspect]
     Indication: FABRY^S DISEASE
     Dosage: 2X35 MG LOT NUMBER E3004Y04; 2X5 MG LOT NUMBER E3016Y03
     Route: 042
     Dates: start: 201006
  2. FABRAZYME [Suspect]
     Indication: FABRY^S DISEASE
     Dosage: 2X35 MG LOT NUMBER E3004Y04; 2X5 MG LOT NUMBER E3016Y03
     Route: 042
     Dates: start: 201006

REACTIONS (6)
  - Presyncope [Recovered/Resolved]
  - Heart rate irregular [Recovered/Resolved]
  - Dizziness [Recovered/Resolved]
  - Chest pain [Recovered/Resolved]
  - Dizziness [Recovered/Resolved]
  - Nausea [Recovered/Resolved]
